FAERS Safety Report 8629511 (Version 3)
Quarter: 2012Q4

REPORT INFORMATION
  Report Type: 
  Country: US (occurrence: US)
  Receive Date: 20120622
  Receipt Date: 20121031
  Transmission Date: 20130627
  Serious: Yes (Other)
  Sender: FDA-Public Use
  Company Number: US-JNJFOC-20120606225

PATIENT
  Sex: Male
  Weight: 86.86 kg

DRUGS (4)
  1. STELARA [Suspect]
     Indication: PSORIASIS
     Route: 058
     Dates: start: 20110323
  2. STELARA [Suspect]
     Indication: PSORIASIS
     Route: 058
     Dates: start: 20120702
  3. CHOLECALCIFEROL [Concomitant]
     Route: 065
  4. MULTIVITAMINS [Concomitant]
     Route: 065

REACTIONS (1)
  - Seminoma [Recovering/Resolving]
